APPROVED DRUG PRODUCT: HYDROXYZINE HYDROCHLORIDE
Active Ingredient: HYDROXYZINE HYDROCHLORIDE
Strength: 50MG
Dosage Form/Route: TABLET;ORAL
Application: A088796 | Product #001
Applicant: SUPERPHARM CORP
Approved: Dec 5, 1984 | RLD: No | RS: No | Type: DISCN